FAERS Safety Report 9349579 (Version 1)
Quarter: 2013Q2

REPORT INFORMATION
  Report Type: Spontaneous
  Country: DE (occurrence: None)
  Receive Date: 20130611
  Receipt Date: 20130611
  Transmission Date: 20140414
  Serious: Yes (Hospitalization)
  Sender: FDA-Public Use
  Company Number: GER/GER/13/0029886

PATIENT
  Age: 29 Year
  Sex: Male
  Weight: 72.8 kg

DRUGS (3)
  1. CITALOPRAM [Suspect]
     Indication: DEPRESSION
     Dosage: 20MG, 1 IN 1D, ORAL
     Route: 048
  2. RATIOPHARM [Suspect]
     Indication: COUGH
     Route: 048
  3. TAXILAN 25 (PERAZINE) [Concomitant]

REACTIONS (6)
  - Acute psychosis [None]
  - Delusion of grandeur [None]
  - Hallucination, visual [None]
  - Hepatic enzyme increased [None]
  - Pelvic fracture [None]
  - Fall [None]
